FAERS Safety Report 5420456-5 (Version None)
Quarter: 2007Q3

REPORT INFORMATION
  Report Type: 
  Country: None (occurrence: None)
  Receive Date: 20070821
  Receipt Date: 20070808
  Transmission Date: 20080115
  Serious: Yes (Other)
  Sender: FDA-Public Use
  Company Number: PHBS2007DK13658

PATIENT
  Age: 29 Year
  Sex: Male

DRUGS (1)
  1. VOLTAREN [Suspect]
     Indication: INJURY
     Route: 061

REACTIONS (1)
  - PROCTITIS HAEMORRHAGIC [None]
